FAERS Safety Report 5495802-7 (Version None)
Quarter: 2007Q4

REPORT INFORMATION
  Report Type: 
  Country: None (occurrence: None)
  Receive Date: 20071025
  Receipt Date: 20061215
  Transmission Date: 20080405
  Serious: No
  Sender: FDA-Public Use
  Company Number: A0624759A

PATIENT
  Age: 81 Year
  Sex: Female

DRUGS (8)
  1. ADVAIR DISKUS 100/50 [Suspect]
     Indication: COUGH
     Dosage: 1PUFF TWICE PER DAY
     Route: 055
     Dates: start: 20061007, end: 20061007
  2. FOSAMAX [Concomitant]
  3. COREG [Concomitant]
  4. LASIX [Concomitant]
  5. LEVOXYL [Concomitant]
  6. NORVASC [Concomitant]
  7. POTASSIUM CHLORIDE [Concomitant]
  8. ZESTRIL [Concomitant]

REACTIONS (4)
  - MALAISE [None]
  - NAUSEA [None]
  - STOMACH DISCOMFORT [None]
  - VOMITING [None]
